FAERS Safety Report 11656012 (Version 4)
Quarter: 2016Q1

REPORT INFORMATION
  Report Type: Report from Study
  Country: US (occurrence: US)
  Receive Date: 20151023
  Receipt Date: 20160122
  Transmission Date: 20160525
  Serious: Yes (Death, Hospitalization)
  Sender: FDA-Public Use
  Company Number: US-ACTELION-A-NJ2015-126091

PATIENT
  Age: 85 Year
  Sex: Female

DRUGS (2)
  1. MACITENTAN [Suspect]
     Active Substance: MACITENTAN
     Indication: PULMONARY ARTERIAL HYPERTENSION
     Dosage: 10 MG, UNK
     Route: 048
  2. ADCIRCA [Concomitant]
     Active Substance: TADALAFIL

REACTIONS (13)
  - Fall [Unknown]
  - Pulmonary arterial hypertension [Unknown]
  - Dyspnoea [Fatal]
  - Condition aggravated [Unknown]
  - Oxygen consumption increased [Unknown]
  - Dizziness [Recovering/Resolving]
  - Hip fracture [Unknown]
  - Dyspnoea [Unknown]
  - Urinary tract infection [Unknown]
  - Myocardial infarction [Fatal]
  - Chronic obstructive pulmonary disease [Fatal]
  - Cough [Unknown]
  - Hypotension [Recovering/Resolving]

NARRATIVE: CASE EVENT DATE: 20151005
